FAERS Safety Report 10005686 (Version 3)
Quarter: 2014Q1

REPORT INFORMATION
  Report Type: Spontaneous
  Country: US (occurrence: US)
  Receive Date: 20140313
  Receipt Date: 20140326
  Transmission Date: 20141002
  Serious: Yes (Hospitalization)
  Sender: FDA-Public Use
  Company Number: US-BIOGENIDEC-2014BI019827

PATIENT
  Sex: Female
  Weight: 81 kg

DRUGS (10)
  1. TYSABRI [Suspect]
     Indication: RELAPSING-REMITTING MULTIPLE SCLEROSIS
     Route: 042
     Dates: start: 20110816, end: 20131022
  2. TECFIDERA [Concomitant]
     Route: 048
     Dates: start: 20140124
  3. AMBIEN [Concomitant]
     Route: 048
     Dates: start: 20140114
  4. CITALOPRAM [Concomitant]
     Route: 048
     Dates: start: 20140114
  5. PREDNISONE [Concomitant]
     Route: 048
     Dates: start: 20140131
  6. PREDNISONE [Concomitant]
     Route: 048
  7. PREDNISONE [Concomitant]
     Route: 048
  8. PREDNISONE [Concomitant]
     Route: 048
  9. SINGULAIR [Concomitant]
     Route: 048
     Dates: start: 20140128
  10. ZOFRAN [Concomitant]
     Route: 048
     Dates: start: 20140128

REACTIONS (2)
  - Multiple sclerosis relapse [Unknown]
  - Depression [Unknown]
